FAERS Safety Report 5514453-9 (Version None)
Quarter: 2007Q4

REPORT INFORMATION
  Report Type: 
  Country: None (occurrence: None)
  Receive Date: 20071113
  Receipt Date: 20070529
  Transmission Date: 20080405
  Serious: No
  Sender: FDA-Public Use
  Company Number: A0653181A

PATIENT
  Age: 65 Year
  Sex: Female

DRUGS (7)
  1. COREG [Suspect]
     Dosage: 12.5MG TWICE PER DAY
     Route: 048
  2. PRAVACHOL [Concomitant]
  3. ZETIA [Concomitant]
  4. ECOTRIN [Concomitant]
  5. UNKNOWN MEDICATION [Concomitant]
  6. ACIPHEX [Concomitant]
  7. COZAAR [Concomitant]

REACTIONS (1)
  - HYPOTENSION [None]
